FAERS Safety Report 8110827-0 (Version None)
Quarter: 2012Q1

REPORT INFORMATION
  Report Type: 
  Country: None (occurrence: None)
  Receive Date: 20120201
  Receipt Date: 20120201
  Transmission Date: 20120608
  Serious: Yes (Hospitalization, Other)
  Sender: FDA-Public Use
  Company Number: None

PATIENT
  Age: 56 Year
  Sex: Female
  Weight: 95.8 kg

DRUGS (2)
  1. SERTRALINE HYDROCHLORIDE [Suspect]
     Dosage: 50 MG EVERY DAY PO
     Route: 048
     Dates: start: 20000418
  2. AZITHROMYCIN [Suspect]
     Dosage: 250 MG EVERY DAY PO
     Route: 048
     Dates: start: 20110601, end: 20120111

REACTIONS (3)
  - CHEST PAIN [None]
  - MYOCARDIAL INFARCTION [None]
  - ELECTROCARDIOGRAM QT PROLONGED [None]
